FAERS Safety Report 9943233 (Version 2)
Quarter: 2014Q1

REPORT INFORMATION
  Report Type: Spontaneous
  Country: JP (occurrence: JP)
  Receive Date: 20140303
  Receipt Date: 20140320
  Transmission Date: 20141002
  Serious: Yes (Life-Threatening, Hospitalization)
  Sender: FDA-Public Use
  Company Number: JP-GLAXOSMITHKLINE-B0973080A

PATIENT
  Age: 35 Year
  Sex: Female
  Weight: 51 kg

DRUGS (6)
  1. SERETIDE (50MCG/100MCG) [Suspect]
     Indication: PRODUCT USED FOR UNKNOWN INDICATION
     Route: 055
  2. CHINESE MEDICINE [Suspect]
     Indication: NASOPHARYNGITIS
     Route: 048
  3. DEXTROMETHORPHAN HYDROBROMIDE [Suspect]
     Indication: NASOPHARYNGITIS
     Route: 065
  4. ASTOMIN [Concomitant]
     Indication: COUGH
     Route: 048
  5. BUDESONIDE [Concomitant]
     Route: 055
  6. FORMOTEROL FUMARATE [Concomitant]
     Route: 065

REACTIONS (6)
  - Dyspnoea [Not Recovered/Not Resolved]
  - Lymphangioleiomyomatosis [Not Recovered/Not Resolved]
  - Hypoxia [Unknown]
  - Cough [Unknown]
  - Exposure during pregnancy [Unknown]
  - Live birth [Unknown]
